FAERS Safety Report 20479322 (Version 4)
Quarter: 2022Q3

REPORT INFORMATION
  Report Type: Spontaneous
  Country: JP (occurrence: JP)
  Receive Date: 20220216
  Receipt Date: 20220714
  Transmission Date: 20221027
  Serious: No
  Sender: FDA-Public Use
  Company Number: JP-GSKNCCC-Case-01418307_AE-54689

PATIENT

DRUGS (8)
  1. SOTROVIMAB [Suspect]
     Active Substance: SOTROVIMAB
     Indication: COVID-19
     Dosage: 500 MG, 500 MG/100 ML/30 MINUTES
     Dates: start: 20220203, end: 20220203
  2. TERAMURO COMBINATION AP TABLETS [Concomitant]
     Dosage: AP, QD, AFTER BREAKFAST
     Dates: start: 20191216
  3. SENNOSIDES [Concomitant]
     Active Substance: SENNOSIDES
     Dosage: 48 MG, QD, BEFORE BED
     Dates: start: 20210210
  4. METHYLCOBALAMIN [Concomitant]
     Active Substance: METHYLCOBALAMIN
     Dosage: 250 ?G, TID, AFTER EACH MEAL
     Dates: start: 20210604
  5. LODOPIN (JAPAN) [Concomitant]
     Dosage: 100 MG, BID, AFTER BREAKFAST AND DINNER
     Dates: start: 20210715
  6. BIPERIDEN HYDROCHLORIDE [Concomitant]
     Active Substance: BIPERIDEN HYDROCHLORIDE
     Dosage: 1 MG, BID, AFTER BREAKFAST AND DINNER
     Dates: start: 20201128
  7. BELSOMRA [Concomitant]
     Active Substance: SUVOREXANT
     Dosage: 20 MG, QD, BEFORE BED
     Dates: start: 20200423
  8. RIVOTRIL [Concomitant]
     Active Substance: CLONAZEPAM
     Dosage: 1 MG, BID, AFTER DINNER AND BEFORE BED
     Dates: start: 20211102

REACTIONS (2)
  - Aspartate aminotransferase increased [Recovered/Resolved]
  - Alanine aminotransferase increased [Recovered/Resolved]

NARRATIVE: CASE EVENT DATE: 20220207
